FAERS Safety Report 19758123 (Version 1)
Quarter: 2021Q3

REPORT INFORMATION
  Report Type: Spontaneous
  Country: US (occurrence: GR)
  Receive Date: 20210828
  Receipt Date: 20210828
  Transmission Date: 20211014
  Serious: Yes (Hospitalization, Other)
  Sender: FDA-Public Use
  Company Number: GR-SETONPHARMA-2020SETSPO00008

PATIENT
  Age: 78 Year
  Sex: Female
  Weight: 69 kg

DRUGS (12)
  1. PREDNISOLONE. [Suspect]
     Active Substance: PREDNISOLONE
     Indication: GIANT CELL ARTERITIS
     Route: 048
     Dates: start: 20191211, end: 20200121
  2. CYMBALTA [Concomitant]
     Active Substance: DULOXETINE HYDROCHLORIDE
     Indication: ANXIETY DISORDER
     Route: 048
     Dates: start: 20150101
  3. ZALDIAR [Concomitant]
     Active Substance: ACETAMINOPHEN\TRAMADOL HYDROCHLORIDE
     Indication: SPINAL FRACTURE
     Dosage: 37.5 MILLIGRAM
     Route: 048
     Dates: start: 20200127
  4. ACLASTA [Concomitant]
     Active Substance: ZOLEDRONIC ACID
     Indication: SPINAL FRACTURE
     Route: 042
     Dates: start: 20200210
  5. CIPROFLOXACIN. [Interacting]
     Active Substance: CIPROFLOXACIN
     Indication: INTERVERTEBRAL DISCITIS
     Route: 065
  6. OMEPRAZOLE. [Concomitant]
     Active Substance: OMEPRAZOLE
     Route: 048
     Dates: start: 20191102
  7. APOTEL [Interacting]
     Active Substance: ACETAMINOPHEN
     Indication: INTERVERTEBRAL DISCITIS
     Route: 065
     Dates: start: 2020
  8. UPADACITINIB [Suspect]
     Active Substance: UPADACITINIB
     Indication: GIANT CELL ARTERITIS
     Route: 048
     Dates: start: 20191211
  9. IDEOS [Concomitant]
     Active Substance: CALCIUM CARBONATE\CHOLECALCIFEROL
     Indication: OSTEOPOROSIS PROPHYLAXIS
     Route: 048
     Dates: start: 20191102
  10. CLINDAMYCIN. [Interacting]
     Active Substance: CLINDAMYCIN
     Indication: INTERVERTEBRAL DISCITIS
     Route: 065
  11. ZALDIAR [Concomitant]
     Active Substance: ACETAMINOPHEN\TRAMADOL HYDROCHLORIDE
     Dosage: 325 MILLIGRAM
     Route: 048
     Dates: start: 20200127
  12. IDEOS [Concomitant]
     Active Substance: CALCIUM CARBONATE\CHOLECALCIFEROL
     Route: 048
     Dates: start: 20191102

REACTIONS (3)
  - Back pain [Not Recovered/Not Resolved]
  - Intervertebral discitis [Not Recovered/Not Resolved]
  - Pyrexia [Not Recovered/Not Resolved]

NARRATIVE: CASE EVENT DATE: 20200524
